FAERS Safety Report 8514286-5 (Version None)
Quarter: 2012Q2

REPORT INFORMATION
  Report Type: 
  Country: None (occurrence: None)
  Receive Date: 20120406
  Receipt Date: 20111012
  Transmission Date: 20120825
  Serious: Yes (Hospitalization)
  Sender: FDA-Public Use
  Company Number: US-CYPR-2011-000077

PATIENT
  Sex: Female
  Weight: 82.5547 kg

DRUGS (10)
  1. CLOPIDOGREL [Suspect]
     Indication: ANTIPLATELET THERAPY
     Dosage: 754 MG, QD, ORAL
     Route: 048
     Dates: start: 20110106
  2. CYPHER [Concomitant]
  3. PRILOSEC [Concomitant]
  4. TRAMADOL HYDROCHLORIDE [Concomitant]
  5. AMIDRINE [Concomitant]
  6. DICYCLOMINE [Concomitant]
  7. SIMVASTATIN [Concomitant]
  8. BYSTOLIC [Concomitant]
  9. LISINOPRIL [Concomitant]
  10. ASPIRIN [Suspect]
     Indication: CORONARY ARTERY DISEASE
     Dosage: 325 MG, QD, ORAL
     Route: 048
     Dates: start: 20100202

REACTIONS (1)
  - ANGINA PECTORIS [None]
